FAERS Safety Report 7354660-6 (Version None)
Quarter: 2011Q1

REPORT INFORMATION
  Report Type: 
  Country: None (occurrence: None)
  Receive Date: 20110304
  Receipt Date: 20090608
  Transmission Date: 20110831
  Serious: Yes (Disabling)
  Sender: FDA-Public Use
  Company Number: UK-2009-00182

PATIENT
  Age: 74 Year
  Sex: Male
  Weight: 112.4 kg

DRUGS (9)
  1. SIMVASTATIN [Suspect]
     Indication: HYPERLIPIDAEMIA
     Dosage: 40 MG (40 MG) ORAL
     Route: 048
     Dates: start: 20090507, end: 20090510
  2. GLICLAZIDE [Concomitant]
  3. OMEPRAZOLE [Concomitant]
  4. METFORMIN [Concomitant]
  5. HYOSCINE BUTYLBROMIDE/HYOSCINE N-BUTYLBROMIDE (BUSCOPAN) (10 MILLIGRAM [Concomitant]
  6. RAMIPRIL [Concomitant]
  7. ASPIRIN [Concomitant]
  8. CIPROFLOXACIN [Concomitant]
  9. ACETAMINOPHEN AND CODEINE PHOSPHATE [Concomitant]

REACTIONS (5)
  - APHASIA [None]
  - TRANSIENT ISCHAEMIC ATTACK [None]
  - MYALGIA [None]
  - FAECAL INCONTINENCE [None]
  - ABDOMINAL PAIN [None]
